FAERS Safety Report 24552701 (Version 1)
Quarter: 2024Q4

REPORT INFORMATION
  Report Type: Spontaneous
  Country: DE (occurrence: DE)
  Receive Date: 20241027
  Receipt Date: 20241027
  Transmission Date: 20250115
  Serious: Yes (Hospitalization, Other)
  Sender: AUROBINDO
  Company Number: DE-ROCHE-10000097212

PATIENT
  Age: 71 Year
  Sex: Male
  Weight: 74 kg

DRUGS (3)
  1. IRINOTECAN [Suspect]
     Active Substance: IRINOTECAN
     Indication: Neoplasm malignant
     Dosage: 173.7 MILLIGRAM, (DATE OF MOST RECENT DOSE OF CANCER TREATMENT 1PRIOR TO AE/SAE ONSET: 16-APR-2024)
     Route: 042
     Dates: start: 20240319, end: 20240416
  2. LEUCOVORIN CALCIUM [Suspect]
     Active Substance: LEUCOVORIN CALCIUM
     Indication: Neoplasm malignant
     Dosage: 772 MILLIGRAM, (DATE OF MOST RECENT DOSE OF CANCER TREATMENT 2PRIOR TO AE/SAE ONSET: 16-APR-2024)
     Route: 042
     Dates: start: 20240319, end: 20240416
  3. FLUOROURACIL [Suspect]
     Active Substance: FLUOROURACIL
     Indication: Neoplasm malignant
     Dosage: 3474 MILLIGRAM, (DATE OF MOST RECENT DOSE OF CANCER TREATMENT 3PRIOR TO AE/SAE ONSET: 16-APR-2024)
     Route: 042
     Dates: start: 20240319, end: 20240416

REACTIONS (1)
  - Interstitial lung disease [Recovered/Resolved]

NARRATIVE: CASE EVENT DATE: 20240423
